FAERS Safety Report 4928960-0 (Version None)
Quarter: 2006Q1

REPORT INFORMATION
  Report Type: 
  Country: None (occurrence: None)
  Receive Date: 20060301
  Receipt Date: 20051025
  Transmission Date: 20060701
  Serious: Yes (Congenital Anomaly)
  Sender: FDA-Public Use
  Company Number: PL-GLAXOSMITHKLINE-B0398684A

PATIENT
  Sex: Female

DRUGS (3)
  1. LAMOTRIGINE [Suspect]
     Indication: EPILEPSY
     Dosage: 300MG PER DAY
  2. CARBAMAZEPINE [Concomitant]
     Indication: EPILEPSY
  3. FOLIC ACID [Concomitant]
     Dosage: .4MG UNKNOWN
     Route: 065

REACTIONS (5)
  - ANAL ATRESIA [None]
  - CONGENITAL OESOPHAGEAL ANOMALY [None]
  - DRUG EXPOSURE DURING PREGNANCY [None]
  - FEMALE GENITAL TRACT FISTULA [None]
  - OESOPHAGEAL ATRESIA [None]
